FAERS Safety Report 16176573 (Version 4)
Quarter: 2019Q2

REPORT INFORMATION
  Report Type: Report from Study
  Country: TN (occurrence: TN)
  Receive Date: 20190409
  Receipt Date: 20190531
  Transmission Date: 20190711
  Serious: Yes (Other)
  Sender: FDA-Public Use
  Company Number: TN-EMD SERONO-9080635

PATIENT
  Age: 42 Year
  Sex: Female

DRUGS (6)
  1. VIT D [Concomitant]
     Active Substance: VITAMIN D NOS
     Indication: PRODUCT USED FOR UNKNOWN INDICATION
     Dosage: 1 VIAL
     Dates: start: 2016
  2. REBIF [Suspect]
     Active Substance: INTERFERON BETA-1A
     Indication: MULTIPLE SCLEROSIS
     Route: 058
     Dates: start: 20190318
  3. VITAMIN C [Concomitant]
     Active Substance: ASCORBIC ACID
     Indication: PRODUCT USED FOR UNKNOWN INDICATION
     Dosage: 500 (UNSPECIFIED UNITS)
     Dates: start: 2016
  4. REBIF [Suspect]
     Active Substance: INTERFERON BETA-1A
     Route: 058
     Dates: start: 20190327
  5. REBIF [Suspect]
     Active Substance: INTERFERON BETA-1A
     Route: 058
     Dates: start: 201905
  6. VIT E                              /00110501/ [Concomitant]
     Active Substance: TOCOPHEROL
     Indication: PRODUCT USED FOR UNKNOWN INDICATION
     Dosage: 100 (UNSPECIFIED UNITS)
     Dates: start: 2016

REACTIONS (19)
  - Poor quality sleep [Unknown]
  - Glossitis [Recovering/Resolving]
  - Aphthous ulcer [Recovering/Resolving]
  - Fatigue [Unknown]
  - Somnolence [Unknown]
  - Dizziness [Recovering/Resolving]
  - Speech disorder [Recovering/Resolving]
  - Stress [Unknown]
  - Feeling cold [Unknown]
  - Chills [Unknown]
  - Myalgia [Unknown]
  - Vomiting [Recovering/Resolving]
  - Vision blurred [Recovering/Resolving]
  - Throat irritation [Recovering/Resolving]
  - Headache [Recovered/Resolved]
  - Pyrexia [Unknown]
  - Off label use [Unknown]
  - Syncope [Recovered/Resolved]
  - Nausea [Recovered/Resolved]

NARRATIVE: CASE EVENT DATE: 2019
